FAERS Safety Report 12706387 (Version 1)
Quarter: 2016Q3

REPORT INFORMATION
  Report Type: Spontaneous
  Country: IT (occurrence: IT)
  Receive Date: 20160901
  Receipt Date: 20160901
  Transmission Date: 20161109
  Serious: Yes (Hospitalization)
  Sender: FDA-Public Use
  Company Number: IT-AUROBINDO-AUR-APL-2016-10822

PATIENT
  Age: 68 Year
  Sex: Male

DRUGS (1)
  1. OMEPRAZOLE. [Suspect]
     Active Substance: OMEPRAZOLE
     Indication: CHRONIC GASTRITIS
     Route: 048

REACTIONS (2)
  - Hypertransaminasaemia [Unknown]
  - Abdominal pain upper [Unknown]

NARRATIVE: CASE EVENT DATE: 20160608
